FAERS Safety Report 9778450 (Version 2)
Quarter: 2013Q4

REPORT INFORMATION
  Report Type: Spontaneous
  Country: CO (occurrence: CO)
  Receive Date: 20131223
  Receipt Date: 20131223
  Transmission Date: 20140711
  Serious: Yes (Death)
  Sender: FDA-Public Use
  Company Number: CO-PFIZER INC-2011044221

PATIENT
  Age: 93 Year
  Sex: Female

DRUGS (1)
  1. ZOLOF [Suspect]
     Indication: DEPRESSION
     Dosage: 50 MG, 1X/DAY
     Route: 048
     Dates: start: 20110126

REACTIONS (2)
  - Lung disorder [Fatal]
  - Nervous system disorder [Fatal]
